FAERS Safety Report 20736577 (Version 1)
Quarter: 2022Q2

REPORT INFORMATION
  Report Type: Spontaneous
  Country: US (occurrence: None)
  Receive Date: 20220420
  Receipt Date: 20220420
  Transmission Date: 20220721
  Serious: Yes (Other)
  Sender: FDA-Public Use
  Company Number: None

PATIENT
  Age: 47 Year
  Sex: Male

DRUGS (1)
  1. PREDNISONE [Suspect]
     Active Substance: PREDNISONE
     Indication: Oedema
     Dosage: FREQUENCY : DAILY;?

REACTIONS (2)
  - Confusional state [None]
  - Blood glucose increased [None]

NARRATIVE: CASE EVENT DATE: 20220323
